FAERS Safety Report 5576395-2 (Version None)
Quarter: 2007Q4

REPORT INFORMATION
  Report Type: 
  Country: None (occurrence: None)
  Receive Date: 20071228
  Receipt Date: 20071225
  Transmission Date: 20080405
  Serious: Yes (Death)
  Sender: FDA-Public Use
  Company Number: JP-ASTRAZENECA-2007AP07100

PATIENT
  Age: 25720 Day
  Sex: Female
  Weight: 36 kg

DRUGS (4)
  1. IRESSA [Suspect]
     Indication: LUNG ADENOCARCINOMA
     Route: 048
     Dates: start: 20030908, end: 20050114
  2. IRESSA [Suspect]
     Route: 048
     Dates: start: 20050225, end: 20050302
  3. GEMZAR [Suspect]
     Dosage: 3 WEEKS ON/ 1 WEEK OFF
     Route: 042
     Dates: start: 20030110, end: 20030530
  4. TAXOTERE [Suspect]
     Dosage: 3 WEEKS ON/ 1 WEEK OFF
     Route: 042
     Dates: start: 20030613, end: 20030802

REACTIONS (1)
  - ACUTE MYELOID LEUKAEMIA [None]
